FAERS Safety Report 23228708 (Version 1)
Quarter: 2023Q4

REPORT INFORMATION
  Report Type: Spontaneous
  Country: US (occurrence: US)
  Receive Date: 20231126
  Receipt Date: 20231126
  Transmission Date: 20240110
  Serious: No
  Sender: FDA-Public Use
  Company Number: US-SUN PHARMACEUTICAL INDUSTRIES LTD-2023R1-378705

PATIENT
  Sex: Female
  Weight: 45.351 kg

DRUGS (1)
  1. OMEPRAZOLE [Suspect]
     Active Substance: OMEPRAZOLE
     Indication: Gastrooesophageal reflux disease
     Dosage: UNK
     Route: 065

REACTIONS (5)
  - Feeling cold [Unknown]
  - Chills [Unknown]
  - Pollakiuria [Unknown]
  - Nausea [Unknown]
  - Fatigue [Unknown]
